FAERS Safety Report 6336233-7 (Version None)
Quarter: 2009Q3

REPORT INFORMATION
  Report Type: 
  Country: None (occurrence: None)
  Receive Date: 20090901
  Receipt Date: 20090824
  Transmission Date: 20100115
  Serious: Yes (Hospitalization, Other)
  Sender: FDA-Public Use
  Company Number: PHEH2009US07158

PATIENT
  Sex: Female

DRUGS (1)
  1. EXJADE [Suspect]
     Dosage: 1500 UNK, QD
     Route: 048

REACTIONS (3)
  - BLOOD COUNT ABNORMAL [None]
  - LIVER DISORDER [None]
  - WEIGHT FLUCTUATION [None]
